FAERS Safety Report 25206182 (Version 1)
Quarter: 2025Q2

REPORT INFORMATION
  Report Type: Spontaneous
  Country: JP (occurrence: JP)
  Receive Date: 20250417
  Receipt Date: 20250417
  Transmission Date: 20250716
  Serious: Yes (Hospitalization, Disabling)
  Sender: EISAI
  Company Number: JP-Eisai-202500481_LEN-EC_P_1

PATIENT
  Age: 57 Year
  Sex: Female
  Weight: 71 kg

DRUGS (8)
  1. LENVIMA [Suspect]
     Active Substance: LENVATINIB
     Indication: Endometrial cancer
     Dates: start: 20240131, end: 2024
  2. LENVIMA [Suspect]
     Active Substance: LENVATINIB
  3. KEYTRUDA [Suspect]
     Active Substance: PEMBROLIZUMAB
     Indication: Endometrial cancer
     Dates: start: 20240131, end: 2024
  4. KEYTRUDA [Suspect]
     Active Substance: PEMBROLIZUMAB
  5. AZILSARTAN OD [Concomitant]
     Indication: Product used for unknown indication
  6. AMLODIPINE [Concomitant]
     Active Substance: AMLODIPINE BESYLATE
     Indication: Product used for unknown indication
  7. MAGNESIUM OXIDE [Concomitant]
     Active Substance: MAGNESIUM OXIDE
     Indication: Product used for unknown indication
  8. HERBALS [Concomitant]
     Active Substance: HERBALS
     Indication: Product used for unknown indication

REACTIONS (1)
  - Immune-mediated adrenal insufficiency [Recovering/Resolving]

NARRATIVE: CASE EVENT DATE: 20240730
